FAERS Safety Report 8042575-X (Version None)
Quarter: 2012Q1

REPORT INFORMATION
  Report Type: 
  Country: None (occurrence: None)
  Receive Date: 20120112
  Receipt Date: 20120109
  Transmission Date: 20120608
  Serious: Yes (Hospitalization)
  Sender: FDA-Public Use
  Company Number: US-PFIZER INC-2012006525

PATIENT
  Sex: Male
  Weight: 70.295 kg

DRUGS (4)
  1. SUTENT [Suspect]
     Indication: RENAL CELL CARCINOMA
     Dosage: 50 MG, 1X/DAY
     Dates: start: 20110801, end: 20110822
  2. MEGESTROL [Concomitant]
     Dosage: UNK
  3. LIPITOR [Concomitant]
     Indication: BLOOD CHOLESTEROL ABNORMAL
     Route: 048
  4. PROTONIX [Concomitant]
     Dosage: 40 MG, UNK

REACTIONS (9)
  - MYOCARDIAL INFARCTION [None]
  - DIARRHOEA [None]
  - BLOOD TRIGLYCERIDES INCREASED [None]
  - OROPHARYNGEAL PAIN [None]
  - HEADACHE [None]
  - VOMITING [None]
  - NAUSEA [None]
  - BLOOD COUNT ABNORMAL [None]
  - WEIGHT DECREASED [None]
